APPROVED DRUG PRODUCT: FAMOTIDINE
Active Ingredient: FAMOTIDINE
Strength: 40MG/5ML
Dosage Form/Route: FOR SUSPENSION;ORAL
Application: A215043 | Product #001 | TE Code: AB
Applicant: NOVITIUM PHARMA LLC
Approved: Apr 20, 2021 | RLD: No | RS: Yes | Type: RX